FAERS Safety Report 23172988 (Version 1)
Quarter: 2023Q4

REPORT INFORMATION
  Report Type: Spontaneous
  Country: None (occurrence: CN)
  Receive Date: 20231110
  Receipt Date: 20231110
  Transmission Date: 20240110
  Serious: Yes (Other)
  Sender: FDA-Public Use
  Company Number: CN-B.Braun Medical Inc.-2148108

PATIENT
  Age: 87 Year
  Sex: Female
  Weight: 55 kg

DRUGS (1)
  1. NUTRILIPID I.V. FAT EMULSION [Suspect]
     Active Substance: SOYBEAN OIL
     Indication: Cerebral infarction
     Route: 042

REACTIONS (6)
  - Speech disorder [None]
  - Tremor [None]
  - Dyspnoea [None]
  - Chills [None]
  - Pyrexia [None]
  - Off label use [None]
